FAERS Safety Report 6326951-9 (Version None)
Quarter: 2009Q3

REPORT INFORMATION
  Report Type: 
  Country: None (occurrence: None)
  Receive Date: 20090825
  Receipt Date: 20090812
  Transmission Date: 20100115
  Serious: Yes (Hospitalization, Other)
  Sender: FDA-Public Use
  Company Number: PHHY2009BR33737

PATIENT
  Sex: Male
  Weight: 50 kg

DRUGS (2)
  1. FORASEQ [Suspect]
     Indication: ASTHMA
     Dosage: 12/400 MCG
     Dates: end: 20080801
  2. FORASEQ [Suspect]
     Dosage: UNK
     Dates: start: 20090811

REACTIONS (5)
  - DYSPNOEA [None]
  - HYPERTENSION [None]
  - LOCAL SWELLING [None]
  - PNEUMONIA [None]
  - SPEECH DISORDER [None]
